FAERS Safety Report 22646633 (Version 1)
Quarter: 2023Q2

REPORT INFORMATION
  Report Type: Spontaneous
  Country: US (occurrence: None)
  Receive Date: 20230626
  Receipt Date: 20230626
  Transmission Date: 20230721
  Serious: No
  Sender: FDA-Public Use
  Company Number: None

PATIENT

DRUGS (1)
  1. TENECTEPLASE [Suspect]
     Active Substance: TENECTEPLASE

REACTIONS (4)
  - Incorrect dose administered [None]
  - Cerebral haemorrhage [None]
  - Subarachnoid haemorrhage [None]
  - Cerebral mass effect [None]
